FAERS Safety Report 5583566-8 (Version None)
Quarter: 2007Q4

REPORT INFORMATION
  Report Type: 
  Country: None (occurrence: None)
  Receive Date: 20071231
  Receipt Date: 20071221
  Transmission Date: 20080405
  Serious: Yes (Hospitalization)
  Sender: FDA-Public Use
  Company Number: 2007SP025349

PATIENT
  Age: 49 Year
  Sex: Female
  Weight: 58.3 kg

DRUGS (1)
  1. TEMODAR [Suspect]
     Indication: GLIOBLASTOMA MULTIFORME
     Dosage: 75 MG/M2, QD
     Dates: start: 20071210, end: 20071216

REACTIONS (7)
  - BRAIN OEDEMA [None]
  - DIZZINESS [None]
  - ENCEPHALOPATHY [None]
  - HEADACHE [None]
  - HEMIPARESIS [None]
  - NAUSEA [None]
  - VOMITING [None]
